FAERS Safety Report 4360253-5 (Version None)
Quarter: 2004Q2

REPORT INFORMATION
  Report Type: 
  Country: None (occurrence: None)
  Receive Date: 20040519
  Receipt Date: 20040505
  Transmission Date: 20050107
  Serious: Yes (Hospitalization, Disabling)
  Sender: FDA-Public Use
  Company Number: 200413451US

PATIENT
  Sex: Female
  Weight: 79.4 kg

DRUGS (15)
  1. ENOXAPARIN SODIUM [Suspect]
     Indication: CORONARY ANGIOPLASTY
     Route: 042
     Dates: start: 20040504, end: 20040504
  2. VISTARIL [Concomitant]
     Indication: ANXIETY
     Dosage: DOSE: 1-2
     Route: 048
  3. LIPITOR [Concomitant]
     Indication: BLOOD CHOLESTEROL INCREASED
     Route: 048
  4. DETROL [Concomitant]
     Indication: INCONTINENCE
     Route: 048
  5. BEXTRA [Concomitant]
     Indication: ARTHRITIS
     Route: 048
  6. ZAROXOLYN [Concomitant]
     Route: 048
  7. LASIX [Concomitant]
     Route: 048
  8. FLUOXETINE HCL [Concomitant]
     Route: 048
  9. K-DUR 10 [Concomitant]
     Route: 048
  10. IMDUR [Concomitant]
     Route: 048
  11. ASPIRIN [Concomitant]
     Route: 048
  12. BENADRYL [Concomitant]
     Route: 042
     Dates: start: 20040504, end: 20040504
  13. VERSED [Concomitant]
     Route: 042
     Dates: start: 20040504, end: 20040504
  14. FENTANYL [Concomitant]
     Dates: start: 20040504, end: 20040504
  15. LIDOCAINE 1% [Concomitant]
     Dates: start: 20040504, end: 20040504

REACTIONS (6)
  - CHEST PAIN [None]
  - DYSARTHRIA [None]
  - FACIAL PALSY [None]
  - ISCHAEMIC STROKE [None]
  - POST PROCEDURAL COMPLICATION [None]
  - TRANSIENT ISCHAEMIC ATTACK [None]
